FAERS Safety Report 9347219 (Version 1)
Quarter: 2013Q2

REPORT INFORMATION
  Report Type: Spontaneous
  Country: US (occurrence: US)
  Receive Date: 20130613
  Receipt Date: 20130613
  Transmission Date: 20140414
  Serious: Yes (Hospitalization, Other)
  Sender: FDA-Public Use
  Company Number: US-ACTELION-A-US2012-61422

PATIENT
  Age: 27 Year
  Sex: Female

DRUGS (4)
  1. TRACLEER [Suspect]
     Indication: PULMONARY ARTERIAL HYPERTENSION
     Dosage: UNK
     Route: 048
  2. COUMADIN [Concomitant]
  3. REMODULIN [Concomitant]
  4. PRADAXA [Concomitant]

REACTIONS (8)
  - Urinary tract infection [Recovering/Resolving]
  - Syncope [Unknown]
  - Dizziness [Unknown]
  - Pulmonary arterial hypertension [Unknown]
  - Condition aggravated [Unknown]
  - Dyspnoea [Unknown]
  - Condition aggravated [Unknown]
  - Vomiting [Unknown]
